FAERS Safety Report 25079856 (Version 2)
Quarter: 2025Q1

REPORT INFORMATION
  Report Type: Spontaneous
  Country: US (occurrence: US)
  Receive Date: 20250314
  Receipt Date: 20250319
  Transmission Date: 20250408
  Serious: Yes (Other)
  Sender: PFIZER
  Company Number: US-PFIZER INC-202500056036

PATIENT
  Age: 50 Year
  Sex: Female

DRUGS (1)
  1. TUKYSA [Suspect]
     Active Substance: TUCATINIB
     Dosage: TAKE TWO 50 MG TABLETS TWICE A DAY
     Route: 048

REACTIONS (2)
  - Metastases to central nervous system [Unknown]
  - Off label use [Unknown]
